FAERS Safety Report 6075970-9 (Version None)
Quarter: 2009Q1

REPORT INFORMATION
  Report Type: 
  Country: None (occurrence: None)
  Receive Date: 20090212
  Receipt Date: 20090131
  Transmission Date: 20090719
  Serious: Yes (Death)
  Sender: FDA-Public Use
  Company Number: US-PFIZER INC-2008152554

PATIENT
  Sex: Male

DRUGS (4)
  1. LIPITOR [Suspect]
  2. NORVASC [Suspect]
     Dosage: UNK
  3. VIAGRA [Suspect]
     Indication: ERECTILE DYSFUNCTION
  4. LOPID [Suspect]

REACTIONS (1)
  - DEATH [None]
